FAERS Safety Report 23224572 (Version 1)
Quarter: 2023Q4

REPORT INFORMATION
  Report Type: Spontaneous
  Country: IT (occurrence: IT)
  Receive Date: 20231124
  Receipt Date: 20231124
  Transmission Date: 20240109
  Serious: Yes (Hospitalization, Other)
  Sender: FDA-Public Use
  Company Number: IT-ALKEM LABORATORIES LIMITED-IT-ALKEM-2022-12637

PATIENT
  Age: 49 Year
  Sex: Female
  Weight: 90 kg

DRUGS (3)
  1. METFORMIN HYDROCHLORIDE [Suspect]
     Active Substance: METFORMIN HYDROCHLORIDE
     Indication: Suicide attempt
     Dosage: 95.2 GRAM (INTENTIONALLY TAKEN)
     Route: 065
  2. PIOGLITAZONE [Suspect]
     Active Substance: PIOGLITAZONE
     Indication: Suicide attempt
     Dosage: 1.6 GRAM (INTENTIONALLY TAKEN)
     Route: 065
  3. INSULIN GLARGINE [Suspect]
     Active Substance: INSULIN GLARGINE
     Indication: Suicide attempt
     Dosage: 40 INTERNATIONAL UNIT (INTENTIONALLY TAKEN)
     Route: 065

REACTIONS (4)
  - Lactic acidosis [Recovered/Resolved]
  - Metabolic acidosis [Unknown]
  - Hypoglycaemia [Unknown]
  - Toxicity to various agents [Unknown]
